FAERS Safety Report 18992268 (Version 1)
Quarter: 2021Q1

REPORT INFORMATION
  Report Type: Report from Study
  Country: US (occurrence: US)
  Receive Date: 20210310
  Receipt Date: 20210310
  Transmission Date: 20210420
  Serious: No
  Sender: FDA-Public Use
  Company Number: US-ORION CORPORATION ORION PHARMA-ENTC2020-0206

PATIENT
  Age: 79 Year
  Sex: Female
  Weight: 56.7 kg

DRUGS (28)
  1. GOCOVRI [Suspect]
     Active Substance: AMANTADINE
     Dosage: AT BEDTIME
     Route: 048
     Dates: start: 202001, end: 2020
  2. GOCOVRI [Suspect]
     Active Substance: AMANTADINE
     Dosage: AT BEDTIME
     Route: 048
     Dates: start: 2020, end: 2020
  3. DILTIAZEM. [Concomitant]
     Active Substance: DILTIAZEM
     Route: 065
  4. VITAMIN B12 [Concomitant]
     Active Substance: CYANOCOBALAMIN
     Route: 065
  5. STALEVO [Suspect]
     Active Substance: CARBIDOPA\ENTACAPONE\LEVODOPA
     Indication: PRODUCT USED FOR UNKNOWN INDICATION
     Route: 065
     Dates: start: 20200608
  6. ENTACAPONE. [Concomitant]
     Active Substance: ENTACAPONE
     Route: 065
     Dates: end: 20200607
  7. MULTIVITAMIN [Concomitant]
     Active Substance: VITAMINS
     Route: 065
  8. VITAMIN E [Concomitant]
     Active Substance: .ALPHA.-TOCOPHEROL
     Route: 065
  9. GOCOVRI [Suspect]
     Active Substance: AMANTADINE
     Dosage: AT BEDTIME
     Route: 048
     Dates: start: 2020, end: 202006
  10. GOCOVRI [Suspect]
     Active Substance: AMANTADINE
     Dosage: STRENGTH: 68.5 MG, AT BEDTIME
     Route: 048
     Dates: start: 20200915
  11. CALCIUM [Concomitant]
     Active Substance: CALCIUM
     Route: 065
  12. FLAXSEED [Concomitant]
     Active Substance: FLAX SEED
     Route: 065
  13. FAMOTIDINE. [Concomitant]
     Active Substance: FAMOTIDINE
     Route: 065
  14. ATORVASTATIN [Concomitant]
     Active Substance: ATORVASTATIN
     Route: 065
  15. DEXILANT [Suspect]
     Active Substance: DEXLANSOPRAZOLE
     Indication: PRODUCT USED FOR UNKNOWN INDICATION
     Route: 065
     Dates: start: 202001, end: 202008
  16. TRIAMCINOLONE ACETONIDE. [Concomitant]
     Active Substance: TRIAMCINOLONE ACETONIDE
     Dosage: 0.01 PERCENT
     Route: 065
  17. XARELTO [Concomitant]
     Active Substance: RIVAROXABAN
     Route: 065
  18. OLOPATADINE. [Concomitant]
     Active Substance: OLOPATADINE
     Route: 065
  19. CRANBERRY. [Concomitant]
     Active Substance: CRANBERRY
     Route: 065
  20. GOCOVRI [Suspect]
     Active Substance: AMANTADINE
     Indication: DYSKINESIA
     Dosage: AT BEDTIME
     Route: 048
     Dates: start: 20191108, end: 20191114
  21. GOCOVRI [Suspect]
     Active Substance: AMANTADINE
     Dosage: AT BEDTIME
     Route: 048
     Dates: start: 20191115, end: 202001
  22. MOMETASONE FUROATE. [Concomitant]
     Active Substance: MOMETASONE FUROATE
     Dosage: 0.01 PERCENT
     Route: 065
  23. LEVOTHYROXINE. [Concomitant]
     Active Substance: LEVOTHYROXINE
     Route: 065
  24. ROPINIROLE. [Concomitant]
     Active Substance: ROPINIROLE
     Route: 065
  25. AZILECT [Concomitant]
     Active Substance: RASAGILINE MESYLATE
     Route: 065
  26. TIMOLOL. [Concomitant]
     Active Substance: TIMOLOL
     Route: 065
  27. VITAMIN D3 [Concomitant]
     Active Substance: CHOLECALCIFEROL
     Route: 065
  28. CARBIDOPA?LEVODOPA [Concomitant]
     Active Substance: CARBIDOPA\LEVODOPA
     Route: 065
     Dates: end: 20200607

REACTIONS (6)
  - Gastrointestinal infection [Unknown]
  - Arthritis [Unknown]
  - Antinuclear antibody positive [Unknown]
  - Vomiting [Unknown]
  - Dyskinesia [Unknown]
  - Visual impairment [Not Recovered/Not Resolved]

NARRATIVE: CASE EVENT DATE: 20200608
